FAERS Safety Report 7775106-X (Version None)
Quarter: 2011Q3

REPORT INFORMATION
  Report Type: 
  Country: None (occurrence: None)
  Receive Date: 20110921
  Receipt Date: 20110920
  Transmission Date: 20111222
  Serious: Yes (Hospitalization, Other)
  Sender: FDA-Public Use
  Company Number: 1717747-2011-00015

PATIENT
  Sex: Female

DRUGS (2)
  1. DELFLEX W/ DEXTROSE 2.5% [Suspect]
     Indication: RENAL FAILURE CHRONIC
     Dosage: 033
     Dates: start: 20110723
  2. DELFLEX 1.5% DEX. LM/LC 5L, 2-L-PK. [Suspect]
     Indication: RENAL FAILURE CHRONIC
     Dosage: 033
     Dates: start: 20110723

REACTIONS (3)
  - INFECTIOUS PERITONITIS [None]
  - PRODUCT QUALITY ISSUE [None]
  - DEVICE OCCLUSION [None]
